FAERS Safety Report 9523188 (Version 1)
Quarter: 2013Q3

REPORT INFORMATION
  Report Type: Spontaneous
  Country: TR (occurrence: TR)
  Receive Date: 20130913
  Receipt Date: 20130913
  Transmission Date: 20140515
  Serious: Yes (Hospitalization)
  Sender: FDA-Public Use
  Company Number: TR-GLAXOSMITHKLINE-B0922160A

PATIENT
  Age: 15 Year
  Sex: Male

DRUGS (1)
  1. LAMOTRIGINE [Suspect]
     Indication: TONIC CONVULSION
     Dosage: 4MGK PER DAY
     Route: 065

REACTIONS (9)
  - Myocarditis [Recovered/Resolved]
  - Electrocardiogram ST segment elevation [Unknown]
  - Pericardial effusion [Unknown]
  - Cardiac enzymes increased [Unknown]
  - Troponin I increased [Unknown]
  - Chest pain [Unknown]
  - Troponin T increased [Unknown]
  - Left ventricular dysfunction [Unknown]
  - Hypersensitivity [Unknown]
